FAERS Safety Report 19275568 (Version 5)
Quarter: 2022Q2

REPORT INFORMATION
  Report Type: Spontaneous
  Country: US (occurrence: US)
  Receive Date: 20210519
  Receipt Date: 20220609
  Transmission Date: 20220721
  Serious: No
  Sender: FDA-Public Use
  Company Number: US-PFIZER INC-2020285612

PATIENT
  Age: 85 Year
  Sex: Female
  Weight: 77 kg

DRUGS (3)
  1. ESTRING [Suspect]
     Active Substance: ESTRADIOL
     Indication: Vulvovaginal dryness
     Dosage: UNK, (1 ESTRING VAGINALLY EVERY 3 MONTHS)
     Route: 067
  2. ESTRING [Suspect]
     Active Substance: ESTRADIOL
     Indication: Vulvovaginal pruritus
     Dosage: USE 1 (ONE) VAGINALLY PER MONTH
     Route: 067
  3. LIPITOR [Concomitant]
     Active Substance: ATORVASTATIN CALCIUM
     Dosage: UNK

REACTIONS (9)
  - Musculoskeletal stiffness [Unknown]
  - Product use issue [Unknown]
  - Intentional product misuse [Unknown]
  - Off label use [Unknown]
  - Illness [Unknown]
  - Feeling abnormal [Unknown]
  - Hypersensitivity [Unknown]
  - Dyspnoea [Unknown]
  - Speech disorder [Unknown]
